FAERS Safety Report 9766407 (Version 2)
Quarter: 2014Q1

REPORT INFORMATION
  Report Type: Spontaneous
  Country: US (occurrence: US)
  Receive Date: 20131217
  Receipt Date: 20140106
  Transmission Date: 20141002
  Serious: Yes (Death)
  Sender: FDA-Public Use
  Company Number: US-CELGENEUS-163-21880-13122367

PATIENT
  Age: 79 Year
  Sex: Female

DRUGS (7)
  1. REVLIMID [Suspect]
     Indication: PLASMA CELL MYELOMA
     Dosage: 25 MILLIGRAM
     Route: 048
     Dates: start: 2010, end: 2010
  2. REVLIMID [Suspect]
     Dosage: 10 MILLIGRAM
     Route: 048
     Dates: start: 201105, end: 2013
  3. REVLIMID [Suspect]
     Dosage: 15-10MG
     Route: 048
     Dates: start: 201305, end: 2013
  4. REVLIMID [Suspect]
     Dosage: 15 MILLIGRAM
     Route: 048
     Dates: start: 201307, end: 20131115
  5. VELCADE [Concomitant]
     Indication: PLASMA CELL MYELOMA
     Route: 041
     Dates: start: 201010, end: 201011
  6. DECADRON [Concomitant]
     Indication: PRODUCT USED FOR UNKNOWN INDICATION
     Route: 048
     Dates: start: 201010, end: 201011
  7. ZOMETA [Concomitant]
     Indication: PRODUCT USED FOR UNKNOWN INDICATION
     Route: 041
     Dates: start: 201011, end: 201311

REACTIONS (1)
  - Plasma cell myeloma [Fatal]
